FAERS Safety Report 4838401-X (Version None)
Quarter: 2005Q4

REPORT INFORMATION
  Report Type: 
  Country: None (occurrence: None)
  Receive Date: 20051123
  Receipt Date: 20051115
  Transmission Date: 20060501
  Serious: Yes (Other)
  Sender: FDA-Public Use
  Company Number: 2005156811

PATIENT
  Age: 54 Year
  Sex: Female
  Weight: 50.8029 kg

DRUGS (1)
  1. NEURONTIN [Suspect]
     Indication: NEURALGIA
     Dosage: ONCE, ORAL
     Route: 048

REACTIONS (3)
  - DYSPHONIA [None]
  - HYPERSENSITIVITY [None]
  - THROAT TIGHTNESS [None]
